FAERS Safety Report 20008456 (Version 1)
Quarter: 2021Q4

REPORT INFORMATION
  Report Type: Spontaneous
  Country: US (occurrence: US)
  Receive Date: 20211028
  Receipt Date: 20211028
  Transmission Date: 20220303
  Serious: Yes (Other)
  Sender: FDA-Public Use
  Company Number: US-NOVARTISPH-NVSC2021US243423

PATIENT
  Age: 61 Year
  Sex: Male

DRUGS (3)
  1. CARBAMAZEPINE [Interacting]
     Active Substance: CARBAMAZEPINE
     Indication: Product used for unknown indication
     Dosage: UNK, UNKNOWN
     Route: 065
  2. COLCHICINE [Interacting]
     Active Substance: COLCHICINE
     Indication: Pericardial haemorrhage
     Dosage: 0.6 MG TWICE DAILY
     Route: 065
  3. IBUPROFEN [Concomitant]
     Active Substance: IBUPROFEN
     Indication: Product used for unknown indication
     Dosage: 800 MG THREE TIMES DAILY
     Route: 065

REACTIONS (3)
  - Acute generalised exanthematous pustulosis [Recovered/Resolved]
  - Myopathy [Recovered/Resolved]
  - Drug interaction [Unknown]
